FAERS Safety Report 16862446 (Version 1)
Quarter: 2019Q3

REPORT INFORMATION
  Report Type: Report from Study
  Country: CA (occurrence: CA)
  Receive Date: 20190927
  Receipt Date: 20190927
  Transmission Date: 20191005
  Serious: Yes (Other)
  Sender: FDA-Public Use
  Company Number: CA-BRISTOL-MYERS SQUIBB COMPANY-BMS-2019-092556

PATIENT
  Sex: Male

DRUGS (1)
  1. NIVOLUMAB [Suspect]
     Active Substance: NIVOLUMAB
     Indication: SALIVARY GLAND CANCER
     Dosage: 1 DOSAGE FORM, Q2WK
     Route: 042
     Dates: start: 20190909

REACTIONS (2)
  - Abdominal pain [Unknown]
  - Haematochezia [Unknown]
